FAERS Safety Report 18645401 (Version 2)
Quarter: 2021Q3

REPORT INFORMATION
  Report Type: Spontaneous
  Country: JP (occurrence: JP)
  Receive Date: 20201221
  Receipt Date: 20210715
  Transmission Date: 20211014
  Serious: Yes (Death, Life-Threatening, Hospitalization, Other)
  Sender: FDA-Public Use
  Company Number: JP-009507513-2007JPN000890J

PATIENT
  Age: 71 Year
  Sex: Male
  Weight: 62 kg

DRUGS (23)
  1. ABRAXANE [Concomitant]
     Active Substance: PACLITAXEL
     Dosage: 160 MILLIGRAM, QD
     Route: 041
     Dates: start: 20200617, end: 20200617
  2. AMLODIPINE [AMLODIPINE BESILATE] [Concomitant]
     Active Substance: AMLODIPINE BESYLATE
     Indication: HYPERTENSION
     Dosage: 5 MILLIGRAM, QD
     Route: 048
     Dates: end: 20200605
  3. ABRAXANE [Concomitant]
     Active Substance: PACLITAXEL
     Dosage: 160 MILLIGRAM, QD
     Route: 041
     Dates: start: 20200527, end: 20200527
  4. GRANISETRON [GRANISETRON HYDROCHLORIDE] [Concomitant]
     Active Substance: GRANISETRON HYDROCHLORIDE
     Dosage: 3 MILLIGRAM, QD
     Route: 041
     Dates: start: 20200617, end: 20200617
  5. DECADRON [Concomitant]
     Active Substance: DEXAMETHASONE
     Indication: NAUSEA
     Dosage: 4 MILLIGRAM, BID
     Route: 048
     Dates: start: 20200521, end: 20200523
  6. LOXOPROFEN NA [Concomitant]
     Active Substance: LOXOPROFEN SODIUM
     Indication: ARTHRALGIA
     Dosage: 60 MILLIGRAM, TID
     Route: 048
     Dates: start: 20200517, end: 20200605
  7. ABRAXANE [Concomitant]
     Active Substance: PACLITAXEL
     Indication: LUNG SQUAMOUS CELL CARCINOMA STAGE III
     Dosage: 160 MILLIGRAM, QD
     Route: 041
     Dates: start: 20200520, end: 20200520
  8. LANSOPRAZOLE. [Concomitant]
     Active Substance: LANSOPRAZOLE
     Indication: DUODENAL ULCER
     Dosage: 15 MILLIGRAM, QD
     Route: 048
     Dates: end: 20200701
  9. KEYTRUDA [Suspect]
     Active Substance: PEMBROLIZUMAB
     Indication: LUNG SQUAMOUS CELL CARCINOMA STAGE III
     Dosage: 200 MILLIGRAM, Q3W
     Route: 041
     Dates: start: 20200520, end: 20200617
  10. ABRAXANE [Concomitant]
     Active Substance: PACLITAXEL
     Dosage: 155 MILLIGRAM, QD
     Route: 041
     Dates: start: 20200624, end: 20200624
  11. DEXART [Concomitant]
     Active Substance: DEXAMETHASONE SODIUM PHOSPHATE
     Indication: VOMITING
     Dosage: 3.3 MILLIGRAM, QD
     Route: 042
     Dates: start: 20200520, end: 20200520
  12. APREPITANT. [Concomitant]
     Active Substance: APREPITANT
     Dosage: 80 MILLIGRAM, QD
     Route: 048
     Dates: start: 20200521, end: 20200522
  13. APREPITANT. [Concomitant]
     Active Substance: APREPITANT
     Dosage: 80 MILLIGRAM, QD
     Route: 048
     Dates: start: 20200618, end: 20200620
  14. VALSARTAN. [Concomitant]
     Active Substance: VALSARTAN
     Indication: HYPERTENSION
     Dosage: 80 MILLIGRAM, QD
     Route: 048
     Dates: end: 20200605
  15. CARBOPLATIN. [Concomitant]
     Active Substance: CARBOPLATIN
     Indication: LUNG SQUAMOUS CELL CARCINOMA STAGE III
     Dosage: 540 MILLIGRAM, EVERY 4 WEEKS
     Route: 041
     Dates: start: 20200520, end: 20200520
  16. DECADRON [Concomitant]
     Active Substance: DEXAMETHASONE
     Dosage: 4 MILLIGRAM, BID
     Route: 048
     Dates: start: 20200618, end: 20200621
  17. ABRAXANE [Concomitant]
     Active Substance: PACLITAXEL
     Dosage: 160 MILLIGRAM, QD
     Route: 041
     Dates: start: 20200610, end: 20200610
  18. ABRAXANE [Concomitant]
     Active Substance: PACLITAXEL
     Dosage: 150 MILLIGRAM, QD
     Route: 041
     Dates: start: 20200624, end: 20200624
  19. APREPITANT. [Concomitant]
     Active Substance: APREPITANT
     Dosage: 125 MILLIGRAM, QD
     Route: 048
     Dates: start: 20200617, end: 20200617
  20. GRANISETRON [GRANISETRON HYDROCHLORIDE] [Concomitant]
     Active Substance: GRANISETRON HYDROCHLORIDE
     Indication: VOMITING
     Dosage: 3 MILLIGRAM, QD
     Route: 041
     Dates: start: 20200520, end: 20200520
  21. APREPITANT. [Concomitant]
     Active Substance: APREPITANT
     Indication: NAUSEA
     Dosage: 125 MILLIGRAM, QD
     Route: 048
     Dates: start: 20200520, end: 20200520
  22. CARBOPLATIN. [Concomitant]
     Active Substance: CARBOPLATIN
     Dosage: 480 MILLIGRAM, Q3W
     Route: 041
     Dates: start: 20200617, end: 20200617
  23. DEXART [Concomitant]
     Active Substance: DEXAMETHASONE SODIUM PHOSPHATE
     Dosage: 3.3 MILLIGRAM, QD
     Route: 041
     Dates: start: 20200617, end: 20200617

REACTIONS (8)
  - Stress cardiomyopathy [Recovered/Resolved]
  - Hepatic function abnormal [Recovered/Resolved]
  - Cystitis haemorrhagic [Recovered/Resolved]
  - Immune-mediated enterocolitis [Recovered/Resolved with Sequelae]
  - Malignant neoplasm progression [Fatal]
  - Pneumonia [Recovered/Resolved]
  - Myocarditis [Recovered/Resolved]
  - Febrile neutropenia [Recovered/Resolved]

NARRATIVE: CASE EVENT DATE: 2020
